FAERS Safety Report 24000170 (Version 1)
Quarter: 2024Q2

REPORT INFORMATION
  Report Type: Spontaneous
  Country: AU (occurrence: AU)
  Receive Date: 20240621
  Receipt Date: 20240621
  Transmission Date: 20240715
  Serious: Yes (Other)
  Sender: FDA-Public Use
  Company Number: AU-PURDUE PHARMA-USA-2023-0304653

PATIENT
  Age: 52 Year
  Sex: Male

DRUGS (4)
  1. ACETAMINOPHEN [Suspect]
     Active Substance: ACETAMINOPHEN
     Indication: Abdominal pain
     Dosage: UNK
     Route: 048
  2. ACETAMINOPHEN [Suspect]
     Active Substance: ACETAMINOPHEN
     Indication: Back pain
  3. OXYCODONE [Suspect]
     Active Substance: OXYCODONE\OXYCODONE HYDROCHLORIDE
     Indication: Back pain
     Route: 065
  4. OXYCODONE [Suspect]
     Active Substance: OXYCODONE\OXYCODONE HYDROCHLORIDE
     Indication: Abdominal pain
     Dosage: 5 MG
     Route: 065

REACTIONS (3)
  - Drug dependence [Unknown]
  - Nausea [Unknown]
  - Constipation [Unknown]
